FAERS Safety Report 25200450 (Version 2)
Quarter: 2025Q2

REPORT INFORMATION
  Report Type: Spontaneous
  Country: US (occurrence: US)
  Receive Date: 20250415
  Receipt Date: 20250523
  Transmission Date: 20250717
  Serious: No
  Sender: CALLIDITAS THERAPEUTICS AB
  Company Number: US-Calliditas-2025CAL00749

PATIENT
  Age: 61 Year
  Sex: Female

DRUGS (10)
  1. TARPEYO [Suspect]
     Active Substance: BUDESONIDE
     Indication: IgA nephropathy
     Route: 048
     Dates: start: 20250125
  2. ATORVASTATIN [Concomitant]
     Active Substance: ATORVASTATIN
  3. CITALOPRAM [Concomitant]
     Active Substance: CITALOPRAM
  4. JARDIANCE [Concomitant]
     Active Substance: EMPAGLIFLOZIN
  5. WARFARIN [Concomitant]
     Active Substance: WARFARIN
  6. LOSARTAN [Concomitant]
     Active Substance: LOSARTAN
  7. TYLENOL [Concomitant]
     Active Substance: ACETAMINOPHEN
  8. VITAMIN D3 [Concomitant]
     Active Substance: CHOLECALCIFEROL
  9. VITAMIN B6 [Concomitant]
     Active Substance: PYRIDOXINE HYDROCHLORIDE
  10. VITAMIN B12 [Concomitant]
     Active Substance: CYANOCOBALAMIN

REACTIONS (4)
  - Night sweats [Recovered/Resolved]
  - Insomnia [Recovered/Resolved]
  - Hot flush [Recovered/Resolved]
  - Prescribed underdose [Unknown]

NARRATIVE: CASE EVENT DATE: 20250125
